FAERS Safety Report 6615988-8 (Version None)
Quarter: 2010Q1

REPORT INFORMATION
  Report Type: 
  Country: None (occurrence: None)
  Receive Date: 20100305
  Receipt Date: 20100301
  Transmission Date: 20100710
  Serious: Yes (Hospitalization)
  Sender: FDA-Public Use
  Company Number: A0848186A

PATIENT
  Age: 60 Year
  Sex: Female

DRUGS (1)
  1. AVANDIA [Suspect]
     Route: 048

REACTIONS (5)
  - AMNESIA [None]
  - BALANCE DISORDER [None]
  - FEAR OF DEATH [None]
  - MYOCARDIAL INFARCTION [None]
  - RESPIRATORY ARREST [None]
